FAERS Safety Report 7769235-4 (Version None)
Quarter: 2011Q3

REPORT INFORMATION
  Report Type: 
  Country: None (occurrence: None)
  Receive Date: 20110922
  Receipt Date: 20110912
  Transmission Date: 20111222
  Serious: Yes (Other)
  Sender: FDA-Public Use
  Company Number: CH-MPIJNJ-2011-03877

PATIENT

DRUGS (9)
  1. CLEXAN [Concomitant]
     Dosage: 40 MG, UNK
     Route: 058
     Dates: start: 20101110, end: 20110517
  2. PANTOZOL                           /01263202/ [Concomitant]
     Dosage: 40 MG, QD
     Route: 048
     Dates: start: 20101110
  3. BACTRIM [Concomitant]
     Dosage: UNK
     Route: 048
     Dates: start: 20101110
  4. DEXAMETHASONE [Concomitant]
     Indication: MULTIPLE MYELOMA
     Dosage: 20 MG, UNK
     Route: 048
     Dates: start: 20101116
  5. ZYLORIC                            /00003301/ [Concomitant]
     Dosage: 300 MG, QD
     Route: 048
     Dates: start: 20101110, end: 20110517
  6. VELCADE [Suspect]
     Indication: MULTIPLE MYELOMA
     Dosage: 1.0 MG/M2, UNK
     Route: 042
     Dates: start: 20101116, end: 20101206
  7. DAFALGAN                           /00020001/ [Concomitant]
     Indication: HEPATOTOXICITY
     Dosage: 4 G, QD
     Route: 048
     Dates: start: 20101110, end: 20101213
  8. CALCIMAGON                         /00108001/ [Concomitant]
     Indication: MINERAL DEFICIENCY
     Dosage: UNK
     Route: 048
     Dates: start: 20101110
  9. THALIDOMIDE [Suspect]
     Indication: MULTIPLE MYELOMA
     Dosage: 100 MG, UNK
     Route: 048
     Dates: start: 20101125, end: 20101213

REACTIONS (2)
  - CYTOLYTIC HEPATITIS [None]
  - NEUROPATHY PERIPHERAL [None]
